FAERS Safety Report 16471599 (Version 1)
Quarter: 2019Q2

REPORT INFORMATION
  Report Type: Report from Study
  Country: DE (occurrence: DE)
  Receive Date: 20190624
  Receipt Date: 20190624
  Transmission Date: 20190711
  Serious: Yes (Hospitalization)
  Sender: FDA-Public Use
  Company Number: DE-B.I. PHARMACEUTICALS,INC./RIDGEFIELD-2019-BI-009795

PATIENT
  Age: 58 Year
  Sex: Female
  Weight: 64 kg

DRUGS (2)
  1. VARGATEF [Suspect]
     Active Substance: NINTEDANIB
     Indication: LUNG ADENOCARCINOMA
     Route: 048
     Dates: start: 20190117, end: 20190318
  2. DOCETAXEL. [Suspect]
     Active Substance: DOCETAXEL
     Indication: LUNG ADENOCARCINOMA
     Dosage: LIQUID  DOSE- 75MG/M2 BODY SURFACE AREA
     Route: 042
     Dates: start: 20190116, end: 20190206

REACTIONS (2)
  - Lung infection [Not Recovered/Not Resolved]
  - Peripheral artery thrombosis [Unknown]

NARRATIVE: CASE EVENT DATE: 20190224
